FAERS Safety Report 8069924-0 (Version None)
Quarter: 2012Q1

REPORT INFORMATION
  Report Type: 
  Country: None (occurrence: None)
  Receive Date: 20120125
  Receipt Date: 20120125
  Transmission Date: 20120608
  Serious: Yes (Other)
  Sender: FDA-Public Use
  Company Number: None

PATIENT
  Age: 50 Year
  Sex: Female
  Weight: 104.32 kg

DRUGS (1)
  1. BENLYSTA [Suspect]
     Indication: SYSTEMIC LUPUS ERYTHEMATOSUS
     Dosage: 1000MG
     Route: 042
     Dates: start: 20110429, end: 20110907

REACTIONS (3)
  - CHRONIC LEUKAEMIA [None]
  - LYMPHOCYTIC LEUKAEMIA [None]
  - NON-HODGKIN'S LYMPHOMA [None]
